FAERS Safety Report 10552020 (Version 1)
Quarter: 2014Q4

REPORT INFORMATION
  Report Type: Spontaneous
  Country: US (occurrence: US)
  Receive Date: 20141029
  Receipt Date: 20141029
  Transmission Date: 20150529
  Serious: Yes (Hospitalization, Other)
  Sender: FDA-Public Use
  Company Number: US-GILEAD-2014-0120529

PATIENT
  Age: 48 Year
  Sex: Female

DRUGS (5)
  1. TYVASO [Concomitant]
     Active Substance: TREPROSTINIL
     Dosage: UNK
     Dates: start: 20141010
  2. REVATIO [Concomitant]
     Active Substance: SILDENAFIL CITRATE
  3. LETAIRIS [Suspect]
     Active Substance: AMBRISENTAN
     Indication: PRODUCT USED FOR UNKNOWN INDICATION
     Dosage: 10 MG, QD
     Route: 065
     Dates: start: 20140328, end: 2014
  4. TYVASO [Concomitant]
     Active Substance: TREPROSTINIL
     Dosage: 3 UNK, UNK
     Dates: end: 2014
  5. XARELTO [Concomitant]
     Active Substance: RIVAROXABAN
     Dosage: 10 MG, UNK

REACTIONS (7)
  - Haemorrhage [Unknown]
  - Cough [Unknown]
  - Fatigue [Unknown]
  - Pulmonary embolism [Unknown]
  - Anaemia [Unknown]
  - Hypotension [Unknown]
  - Headache [Unknown]
